APPROVED DRUG PRODUCT: ARMONAIR RESPICLICK
Active Ingredient: FLUTICASONE PROPIONATE
Strength: 0.03MG/INH
Dosage Form/Route: POWDER;INHALATION
Application: N208798 | Product #007
Applicant: TEVA PHARMACEUTICAL INDUSTRIES LTD
Approved: Jul 9, 2021 | RLD: Yes | RS: No | Type: DISCN

PATENTS:
Patent 10195375 | Expires: Feb 14, 2031
Patent 11969544 | Expires: Aug 20, 2039
Patent 11969544*PED | Expires: Feb 20, 2040
Patent 10195375*PED | Expires: Aug 14, 2031